FAERS Safety Report 7027384-2 (Version None)
Quarter: 2010Q4

REPORT INFORMATION
  Report Type: 
  Country: None (occurrence: None)
  Receive Date: 20101004
  Receipt Date: 20100920
  Transmission Date: 20110411
  Serious: Yes (Hospitalization, Other)
  Sender: FDA-Public Use
  Company Number: US-MYLANLABS-2009S1000714

PATIENT
  Age: 58 Year
  Sex: Female
  Weight: 65 kg

DRUGS (7)
  1. METOPROLOL [Suspect]
     Indication: HYPERTENSION
     Route: 048
  2. LYRICA [Suspect]
     Indication: NEUROPATHY PERIPHERAL
  3. MANINIL [Suspect]
     Indication: TYPE 2 DIABETES MELLITUS
     Route: 048
     Dates: end: 20081026
  4. MANINIL [Suspect]
     Dates: start: 20081028
  5. CIPRAMIL [Concomitant]
     Indication: DEPRESSION
     Route: 048
  6. DELIX PLUS [Concomitant]
     Indication: HYPERTENSION
     Route: 048
  7. MEMANTINE HCL [Concomitant]
     Indication: DEMENTIA
     Route: 048

REACTIONS (1)
  - HYPOGLYCAEMIA [None]
